FAERS Safety Report 17487438 (Version 16)
Quarter: 2023Q2

REPORT INFORMATION
  Report Type: Spontaneous
  Country: US (occurrence: US)
  Receive Date: 20200303
  Receipt Date: 20230623
  Transmission Date: 20230722
  Serious: Yes (Other)
  Sender: FDA-Public Use
  Company Number: US-PFIZER INC-2020093357

PATIENT
  Age: 1 Year
  Sex: Male
  Weight: 10 kg

DRUGS (5)
  1. BENEFIX [Suspect]
     Active Substance: COAGULATION FACTOR IX RECOMBINANT HUMAN\ISOPROPYL ALCOHOL
     Indication: Haemorrhage
     Dosage: 1000 UNITS (+5%) = 100 UNITS/KG DAILY X 1 ON DEMAND
  2. BENEFIX [Suspect]
     Active Substance: COAGULATION FACTOR IX RECOMBINANT HUMAN\ISOPROPYL ALCOHOL
     Dosage: 1000 UNITS (+5%) = 100 UNITS/KG EVERY OTHER DAY UNTIL HEMATOMA IS FLAT AND DAILY X 1 ON DEMAND
  3. BENEFIX [Suspect]
     Active Substance: COAGULATION FACTOR IX RECOMBINANT HUMAN\ISOPROPYL ALCOHOL
     Dosage: 1100 UNITS (+5%)= 100 UNITS/KG DAILY X 1 ON DEMAND
  4. BENEFIX [Suspect]
     Active Substance: COAGULATION FACTOR IX RECOMBINANT HUMAN\ISOPROPYL ALCOHOL
     Dosage: 1200 UNITS (+5%) = 100 UNITS/KG DAILY
  5. BENEFIX [Suspect]
     Active Substance: COAGULATION FACTOR IX RECOMBINANT HUMAN\ISOPROPYL ALCOHOL
     Dosage: 1800 IU (+ 5%) = 100 IU/KG DAILY X 1 ON-DEMAND FOR A BLEED

REACTIONS (3)
  - Haemorrhage [Unknown]
  - Haematoma [Unknown]
  - Mouth haemorrhage [Unknown]
